FAERS Safety Report 7380744-2 (Version None)
Quarter: 2011Q1

REPORT INFORMATION
  Report Type: 
  Country: None (occurrence: None)
  Receive Date: 20110329
  Receipt Date: 20110318
  Transmission Date: 20110831
  Serious: Yes (Other)
  Sender: FDA-Public Use
  Company Number: A0757691A

PATIENT
  Age: 60 Year
  Sex: Male
  Weight: 129.5 kg

DRUGS (7)
  1. VIOXX [Concomitant]
  2. LIPITOR [Concomitant]
  3. CLARITIN [Concomitant]
  4. GLUCOTROL [Concomitant]
  5. LANTUS [Concomitant]
  6. GLUCOPHAGE [Concomitant]
  7. AVANDIA [Suspect]
     Dosage: 4MG TWICE PER DAY
     Route: 048
     Dates: start: 20000322, end: 20070801

REACTIONS (2)
  - MYOCARDIAL INFARCTION [None]
  - CORONARY ARTERY DISEASE [None]
